FAERS Safety Report 10202778 (Version 3)
Quarter: 2014Q2

REPORT INFORMATION
  Report Type: Spontaneous
  Country: US (occurrence: US)
  Receive Date: 20140528
  Receipt Date: 20140617
  Transmission Date: 20141212
  Serious: Yes (Other)
  Sender: FDA-Public Use
  Company Number: US-TEVA-484895USA

PATIENT
  Age: 20 Year
  Sex: Female
  Weight: 81.72 kg

DRUGS (1)
  1. PLAN B ONE-STEP [Suspect]
     Indication: POST COITAL CONTRACEPTION
     Dosage: 1.5 MILLIGRAM DAILY;
     Route: 048
     Dates: start: 20140503, end: 20140503

REACTIONS (6)
  - Pregnancy after post coital contraception [Not Recovered/Not Resolved]
  - Menstruation irregular [Recovered/Resolved]
  - Dysmenorrhoea [Recovered/Resolved]
  - Pelvic pain [Recovered/Resolved]
  - Maternal exposure before pregnancy [Not Recovered/Not Resolved]
  - Menstruation delayed [Not Recovered/Not Resolved]
